FAERS Safety Report 11858346 (Version 1)
Quarter: 2015Q4

REPORT INFORMATION
  Report Type: Spontaneous
  Country: CA (occurrence: CA)
  Receive Date: 20151222
  Receipt Date: 20151222
  Transmission Date: 20160305
  Serious: Yes (Other)
  Sender: FDA-Public Use
  Company Number: CA-009507513-1512CAN008419

PATIENT
  Sex: Male

DRUGS (1)
  1. INTRON A [Suspect]
     Active Substance: INTERFERON ALFA-2B
     Indication: MYCOSIS FUNGOIDES
     Dosage: 6 MIU, MON, WED AND FRI
     Route: 058
     Dates: start: 20140828, end: 2015

REACTIONS (1)
  - Pharyngeal cancer [Recovering/Resolving]

NARRATIVE: CASE EVENT DATE: 2015
